FAERS Safety Report 25834323 (Version 1)
Quarter: 2025Q3

REPORT INFORMATION
  Report Type: Spontaneous
  Country: US (occurrence: US)
  Receive Date: 20250923
  Receipt Date: 20250923
  Transmission Date: 20251020
  Serious: Yes (Other)
  Sender: CELLTRION
  Company Number: US-CELLTRION INC.-2025US021719

PATIENT

DRUGS (2)
  1. INFLECTRA [Suspect]
     Active Substance: INFLIXIMAB-DYYB
     Indication: Crohn^s disease
     Dosage: UNK, EVERY 4 WEEKS
     Route: 042
     Dates: start: 202412
  2. INFLECTRA [Suspect]
     Active Substance: INFLIXIMAB-DYYB
     Dosage: UNK, EVERY 4 WEEKS
     Route: 042
     Dates: start: 202506

REACTIONS (5)
  - Cough [Not Recovered/Not Resolved]
  - Hypersensitivity [Unknown]
  - Product substitution issue [Unknown]
  - Off label use [Unknown]
  - Intentional product use issue [Unknown]

NARRATIVE: CASE EVENT DATE: 20250101
